FAERS Safety Report 6174988-5 (Version None)
Quarter: 2009Q2

REPORT INFORMATION
  Report Type: 
  Country: None (occurrence: None)
  Receive Date: 20090430
  Receipt Date: 20081107
  Transmission Date: 20091009
  Serious: No
  Sender: FDA-Public Use
  Company Number: US-ASTRAZENECA-2008UW24974

PATIENT

DRUGS (1)
  1. NEXIUM [Suspect]
     Dosage: 40 MG
     Route: 048
     Dates: start: 20080101

REACTIONS (1)
  - BLOOD GASTRIN INCREASED [None]
